FAERS Safety Report 15985616 (Version 1)
Quarter: 2019Q1

REPORT INFORMATION
  Report Type: Spontaneous
  Country: NL (occurrence: NL)
  Receive Date: 20190220
  Receipt Date: 20190220
  Transmission Date: 20190418
  Serious: Yes (Death, Life-Threatening)
  Sender: FDA-Public Use
  Company Number: NL-TEVA-2019-NL-1013366

PATIENT
  Age: 65 Year
  Sex: Male
  Weight: 85 kg

DRUGS (10)
  1. VIT B COMPLEX FORTE [Concomitant]
     Dosage: 1 DOSAGE FORMS DAILY;
     Dates: start: 2015
  2. DESMOPRESSINE 0,2 MG [Concomitant]
     Dosage: 1 DOSAGE FORMS DAILY;
     Dates: start: 2015
  3. DIAZEPAM 0.5 MG 1 D (AFBOUW , GEBRUIKTE EERDER 2 D 2 MG VA 2013) [Concomitant]
     Dosage: 1 DOSAGE FORMS DAILY; 1 D (RUN DOWN, USED PREVIOUSLY 2 D 2 MG FROM 2013)
     Dates: start: 2013
  4. COLECALCIFEROL [Concomitant]
     Active Substance: CHOLECALCIFEROL
     Route: 048
  5. ALENDRONINE ZUUR 70 MG [Concomitant]
     Dosage: 1 X PER WEEK SINCE 3 YEARS
     Dates: start: 2016
  6. CLOZAPINE TABLET, 100 MG (MILLIGRAM) [Suspect]
     Active Substance: CLOZAPINE
     Indication: DELUSION
     Dosage: 2 D 1 AND 1 D 0.5 TABL TOTAL 250MG PER DAY. (SLOWLY BUILT UP TO THIS DOSAGE)
     Route: 065
     Dates: start: 20161228, end: 20181102
  7. CLOZAPINE TABLET, 100 MG (MILLIGRAM) [Suspect]
     Active Substance: CLOZAPINE
     Indication: OBSESSIVE-COMPULSIVE DISORDER
  8. THIAMINE. [Concomitant]
     Active Substance: THIAMINE
     Dates: start: 2013
  9. MOVICOLON [Suspect]
     Active Substance: POLYETHYLENE GLYCOL 3350\POTASSIUM CHLORIDE\SODIUM BICARBONATE\SODIUM CHLORIDE
     Indication: PRODUCT USED FOR UNKNOWN INDICATION
     Dosage: 25 ML DAILY;
     Dates: start: 20180606, end: 20180618
  10. RESDAN SHAMPOO [Concomitant]
     Dosage: 3 X PER WEEK.

REACTIONS (3)
  - Impaired gastric emptying [Recovered/Resolved with Sequelae]
  - Vomiting [Recovered/Resolved with Sequelae]
  - Ileus paralytic [Recovered/Resolved with Sequelae]

NARRATIVE: CASE EVENT DATE: 20180616
